FAERS Safety Report 6874664-7 (Version None)
Quarter: 2010Q3

REPORT INFORMATION
  Report Type: 
  Country: None (occurrence: None)
  Receive Date: 20100722
  Receipt Date: 20100709
  Transmission Date: 20110219
  Serious: Yes (Death)
  Sender: FDA-Public Use
  Company Number: FABR-1001074

PATIENT
  Age: 47 Year
  Sex: Male
  Weight: 90 kg

DRUGS (4)
  1. FABRAZYME [Suspect]
     Indication: FABRY'S DISEASE
     Dosage: 40 MG, Q3W, INTRAVENOUS, 90 MG, Q2W, INTRAVENOUS
     Route: 042
     Dates: end: 20091112
  2. FABRAZYME [Suspect]
     Indication: FABRY'S DISEASE
     Dosage: 40 MG, Q3W, INTRAVENOUS, 90 MG, Q2W, INTRAVENOUS
     Route: 042
     Dates: start: 20040101
  3. LASIX [Concomitant]
  4. PREDNISONE [Concomitant]

REACTIONS (8)
  - ACCIDENT [None]
  - CONTUSION [None]
  - DIZZINESS [None]
  - FALL [None]
  - HEAD INJURY [None]
  - NECK INJURY [None]
  - PRODUCT CONTAMINATION PHYSICAL [None]
  - SKIN LACERATION [None]
